FAERS Safety Report 17147255 (Version 1)
Quarter: 2019Q4

REPORT INFORMATION
  Report Type: Spontaneous
  Country: NL (occurrence: GB)
  Receive Date: 20191212
  Receipt Date: 20191212
  Transmission Date: 20200122
  Serious: Yes (Hospitalization)
  Sender: FDA-Public Use
  Company Number: GB-BAYER-2019-217706

PATIENT
  Age: 63 Year
  Sex: Female

DRUGS (6)
  1. LEVOTHYROXINE. [Concomitant]
     Active Substance: LEVOTHYROXINE
  2. CLINDAMYCIN. [Suspect]
     Active Substance: CLINDAMYCIN
  3. TEICOPLANIN [Suspect]
     Active Substance: TEICOPLANIN
  4. LINEZOLID. [Suspect]
     Active Substance: LINEZOLID
  5. CIPROFLOXACIN. [Suspect]
     Active Substance: CIPROFLOXACIN
  6. LYMECYCLINE [Concomitant]
     Active Substance: LYMECYCLINE

REACTIONS (1)
  - Drug reaction with eosinophilia and systemic symptoms [Unknown]
